FAERS Safety Report 14430332 (Version 1)
Quarter: 2018Q1

REPORT INFORMATION
  Report Type: Spontaneous
  Country: US (occurrence: US)
  Receive Date: 20180123
  Receipt Date: 20180123
  Transmission Date: 20180509
  Serious: Yes (Hospitalization, Other)
  Sender: FDA-Public Use
  Company Number: US-ROCHE-2020963

PATIENT
  Age: 12 Year
  Sex: Male

DRUGS (2)
  1. ACTEMRA [Suspect]
     Active Substance: TOCILIZUMAB
     Indication: CYTOKINE RELEASE SYNDROME
     Dosage: DOSAGE IS UNCERTAIN.
     Route: 042
     Dates: start: 20160416
  2. TISAGENLECLEUCEL. [Suspect]
     Active Substance: TISAGENLECLEUCEL
     Indication: ACUTE LYMPHOCYTIC LEUKAEMIA
     Dosage: DOSAGE IS UNCERTAIN.
     Route: 041
     Dates: start: 20160407

REACTIONS (11)
  - Acute kidney injury [Unknown]
  - Hypoxia [Recovered/Resolved]
  - Tachycardia [Unknown]
  - Staphylococcal infection [Recovered/Resolved]
  - Epistaxis [Recovered/Resolved]
  - Hypotension [Unknown]
  - Pancreatitis [Recovered/Resolved]
  - Haemodynamic instability [Unknown]
  - Staphylococcal bacteraemia [Recovered/Resolved]
  - Septic shock [Unknown]
  - Infusion related reaction [Recovered/Resolved]

NARRATIVE: CASE EVENT DATE: 20170205
